FAERS Safety Report 13776265 (Version 1)
Quarter: 2017Q3

REPORT INFORMATION
  Report Type: Spontaneous
  Country: FR (occurrence: FR)
  Receive Date: 20170720
  Receipt Date: 20170720
  Transmission Date: 20171127
  Serious: Yes (Death)
  Sender: FDA-Public Use
  Company Number: FR-PFM-2017-06300

PATIENT

DRUGS (6)
  1. SIMVASTATINE [Concomitant]
     Active Substance: SIMVASTATIN
     Indication: PRODUCT USED FOR UNKNOWN INDICATION
     Dosage: 10 MG PER DAY, LONG-TERM TREATMENT
     Route: 048
  2. NAVELBINE [Suspect]
     Active Substance: VINORELBINE TARTRATE
     Indication: BRONCHIAL CARCINOMA
     Dosage: 55 MG, WEEKLY
     Route: 042
     Dates: start: 20170217, end: 20170224
  3. MONO TILDIEM [Concomitant]
     Active Substance: DILTIAZEM HYDROCHLORIDE
     Indication: PRODUCT USED FOR UNKNOWN INDICATION
     Dosage: 200 MG SR PER DAY, LONG-TERM TREATMENT
     Route: 048
  4. SOLU-MEDROL [Suspect]
     Active Substance: METHYLPREDNISOLONE SODIUM SUCCINATE
     Indication: PRODUCT USED FOR UNKNOWN INDICATION
     Dosage: 60 MG, WEEKLY
     Route: 042
     Dates: start: 20170217, end: 20170224
  5. KARDEGIC [Concomitant]
     Active Substance: ASPIRIN LYSINE
     Indication: PRODUCT USED FOR UNKNOWN INDICATION
     Dosage: 160 MG PER DAY, LONG-TERM TREATMENT
     Route: 048
  6. CARBOPLATINE [Suspect]
     Active Substance: CARBOPLATIN
     Indication: BRONCHIAL CARCINOMA
     Dosage: 430 MG, ONCE
     Route: 042
     Dates: start: 20170217, end: 20170217

REACTIONS (4)
  - Septic shock [Fatal]
  - Neutropenia [Fatal]
  - Multiple organ dysfunction syndrome [Fatal]
  - Leukopenia [Fatal]

NARRATIVE: CASE EVENT DATE: 20170225
